FAERS Safety Report 14485576 (Version 1)
Quarter: 2018Q1

REPORT INFORMATION
  Report Type: Spontaneous
  Country: US (occurrence: US)
  Receive Date: 20180202
  Receipt Date: 20180202
  Transmission Date: 20180509
  Serious: Yes (Disabling, Other)
  Sender: FDA-Public Use
  Company Number: None

PATIENT
  Age: 11 Year
  Sex: Male
  Weight: 49.5 kg

DRUGS (5)
  1. MELATONIN [Concomitant]
     Active Substance: MELATONIN
  2. MULTIVITAMIN [Concomitant]
     Active Substance: VITAMINS
  3. SERTRALINE [Concomitant]
     Active Substance: SERTRALINE HYDROCHLORIDE
  4. SINGULAIR [Suspect]
     Active Substance: MONTELUKAST SODIUM
     Indication: ASTHMA
     Dates: end: 20140512
  5. GUANFACINE. [Concomitant]
     Active Substance: GUANFACINE

REACTIONS (6)
  - Anxiety [None]
  - Disturbance in attention [None]
  - Aggression [None]
  - Suicidal ideation [None]
  - Depression [None]
  - Feeling abnormal [None]

NARRATIVE: CASE EVENT DATE: 20180201
